FAERS Safety Report 22593954 (Version 1)
Quarter: 2023Q2

REPORT INFORMATION
  Report Type: Spontaneous
  Country: US (occurrence: None)
  Receive Date: 20230612
  Receipt Date: 20230612
  Transmission Date: 20230721
  Serious: No
  Sender: FDA-Public Use
  Company Number: None

PATIENT
  Age: 79 Year
  Sex: Male
  Weight: 112.04 kg

DRUGS (19)
  1. ABIRATERONE [Suspect]
     Active Substance: ABIRATERONE
     Indication: Prostate cancer
     Dosage: FREQUENCY : DAILY;?
     Route: 048
     Dates: start: 20230208
  2. ALBUTEROL [Concomitant]
  3. ALLOPURINOL [Concomitant]
     Active Substance: ALLOPURINOL
  4. BISACODYL [Concomitant]
     Active Substance: BISACODYL
  5. CALCIUM CARBONATE [Concomitant]
  6. FUROSEMIDE [Concomitant]
     Active Substance: FUROSEMIDE
  7. LASIX [Concomitant]
     Active Substance: FUROSEMIDE
  8. LIDOCAINE\PRILOCAINE [Concomitant]
     Active Substance: LIDOCAINE\PRILOCAINE
  9. LIDODERM [Concomitant]
     Active Substance: LIDOCAINE
  10. METOLAZONE [Concomitant]
     Active Substance: METOLAZONE
  11. MIRALAX [Concomitant]
     Active Substance: POLYETHYLENE GLYCOL 3350
  12. VITAMINS [Concomitant]
     Active Substance: VITAMINS
  13. NIFEDIPINE [Concomitant]
     Active Substance: NIFEDIPINE
  14. NORCO [Concomitant]
     Active Substance: ACETAMINOPHEN\HYDROCODONE BITARTRATE
  15. POTASSIUM CHLORIDE [Concomitant]
     Active Substance: POTASSIUM CHLORIDE
  16. PREDNISONE [Concomitant]
     Active Substance: PREDNISONE
  17. SYMBICORT [Concomitant]
     Active Substance: BUDESONIDE\FORMOTEROL FUMARATE DIHYDRATE
  18. TAMSULOSIN [Concomitant]
     Active Substance: TAMSULOSIN
  19. TYLENOL [Concomitant]

REACTIONS (2)
  - Prostate cancer [None]
  - Therapy cessation [None]
